FAERS Safety Report 5474333-4 (Version None)
Quarter: 2007Q4

REPORT INFORMATION
  Report Type: 
  Country: None (occurrence: None)
  Receive Date: 20071002
  Receipt Date: 20070927
  Transmission Date: 20080405
  Serious: Yes (Death, Other)
  Sender: FDA-Public Use
  Company Number: PHBS2007BR16095

PATIENT
  Age: 75 Year
  Sex: Female

DRUGS (1)
  1. CLORETO DE POTASSIO [Suspect]
     Indication: MUSCLE SPASMS

REACTIONS (6)
  - CARDIAC ARREST [None]
  - CARDIAC DISORDER [None]
  - DYSPNOEA [None]
  - LUNG INFECTION [None]
  - VAGINAL CANCER [None]
  - WOUND [None]
